FAERS Safety Report 6927628-9 (Version None)
Quarter: 2010Q3

REPORT INFORMATION
  Report Type: 
  Country: None (occurrence: None)
  Receive Date: 20100817
  Receipt Date: 20100804
  Transmission Date: 20110219
  Serious: Yes (Hospitalization)
  Sender: FDA-Public Use
  Company Number: PHHY2010US53032

PATIENT

DRUGS (1)
  1. TEKTURNA [Suspect]
     Dosage: 300 MG, UNK

REACTIONS (4)
  - DIZZINESS [None]
  - HYPERHIDROSIS [None]
  - INCOHERENT [None]
  - NAUSEA [None]
